FAERS Safety Report 6817616-5 (Version None)
Quarter: 2010Q3

REPORT INFORMATION
  Report Type: 
  Country: None (occurrence: None)
  Receive Date: 20100706
  Receipt Date: 20100625
  Transmission Date: 20110219
  Serious: Yes (Life-Threatening, Hospitalization, Other)
  Sender: FDA-Public Use
  Company Number: CZ-JNJFOC-20100608519

PATIENT
  Sex: Female

DRUGS (8)
  1. REMICADE [Suspect]
     Indication: RHEUMATOID ARTHRITIS
     Route: 042
  2. OMEPRAZOLE [Concomitant]
  3. METHOTREXATE [Concomitant]
  4. ACIDUM FOLICUM [Concomitant]
  5. CALTRATE PLUS [Concomitant]
  6. MEDROL [Concomitant]
  7. ALENDRONATE [Concomitant]
  8. LOZAP H [Concomitant]

REACTIONS (2)
  - CHRONIC OBSTRUCTIVE PULMONARY DISEASE [None]
  - PNEUMONIA [None]
